FAERS Safety Report 16313332 (Version 1)
Quarter: 2019Q2

REPORT INFORMATION
  Report Type: Spontaneous
  Country: US (occurrence: US)
  Receive Date: 20190514
  Receipt Date: 20190514
  Transmission Date: 20190711
  Serious: No
  Sender: FDA-Public Use
  Company Number: None

PATIENT
  Age: 26 Year
  Sex: Female
  Weight: 81.65 kg

DRUGS (5)
  1. IBUPROFEN. [Concomitant]
     Active Substance: IBUPROFEN
  2. KYLEENA [Suspect]
     Active Substance: LEVONORGESTREL
  3. MIDOL [Concomitant]
     Active Substance: IBUPROFEN
  4. HEATING PADS [Concomitant]
  5. MOTRIN [Concomitant]
     Active Substance: IBUPROFEN

REACTIONS (4)
  - Pain [None]
  - Depression [None]
  - Anxiety [None]
  - Complication associated with device [None]
